FAERS Safety Report 7597088-6 (Version None)
Quarter: 2011Q3

REPORT INFORMATION
  Report Type: 
  Country: None (occurrence: None)
  Receive Date: 20110708
  Receipt Date: 20110706
  Transmission Date: 20111222
  Serious: Yes (Other)
  Sender: FDA-Public Use
  Company Number: US-PFIZER INC-2011151644

PATIENT
  Sex: Male

DRUGS (1)
  1. SUTENT [Suspect]
     Indication: METASTATIC RENAL CELL CARCINOMA
     Dosage: 50 MG, 1X/DAY
     Route: 048
     Dates: start: 20110511

REACTIONS (9)
  - ERUCTATION [None]
  - EAR HAEMORRHAGE [None]
  - DRY SKIN [None]
  - CHEST DISCOMFORT [None]
  - SKIN EXFOLIATION [None]
  - DIARRHOEA [None]
  - FATIGUE [None]
  - ASTHENIA [None]
  - BONE PAIN [None]
